FAERS Safety Report 5749701-3 (Version None)
Quarter: 2008Q2

REPORT INFORMATION
  Report Type: 
  Country: None (occurrence: None)
  Receive Date: 20080527
  Receipt Date: 20080521
  Transmission Date: 20081010
  Serious: Yes (Other)
  Sender: FDA-Public Use
  Company Number: PT-ASTRAZENECA-2008AC01309

PATIENT
  Age: 23831 Day
  Sex: Female
  Weight: 57 kg

DRUGS (3)
  1. VISACOR [Suspect]
     Indication: HYPERCHOLESTEROLAEMIA
     Route: 048
     Dates: start: 20070901, end: 20080307
  2. RISEDRONATE SODIUM [Concomitant]
     Dates: start: 20010101
  3. CALCIUM CARBONATE + CHOLECALCIFEROL [Concomitant]
     Route: 048
     Dates: start: 20010101

REACTIONS (3)
  - FACE OEDEMA [None]
  - FEELING HOT [None]
  - PRURITUS [None]
